FAERS Safety Report 12249006 (Version 1)
Quarter: 2016Q2

REPORT INFORMATION
  Report Type: Spontaneous
  Country: US (occurrence: None)
  Receive Date: 20160407
  Receipt Date: 20160407
  Transmission Date: 20160815
  Serious: No
  Sender: FDA-Public Use
  Company Number: None

PATIENT
  Age: 78 Year
  Sex: Female
  Weight: 114 kg

DRUGS (25)
  1. POTCHLOR ER [Concomitant]
  2. LIDOCAIN PATCH [Concomitant]
  3. FOLIC ACID. [Concomitant]
     Active Substance: FOLIC ACID
  4. LEVOTHYROXINE. [Concomitant]
     Active Substance: LEVOTHYROXINE
  5. ZADITOR [Concomitant]
     Active Substance: KETOTIFEN FUMARATE
  6. ATORVASTATIN [Concomitant]
     Active Substance: ATORVASTATIN
  7. SYSTANE ULTRA [Concomitant]
     Active Substance: POLYETHYLENE GLYCOL 400\PROPYLENE GLYCOL
  8. VITAMIN D [Concomitant]
     Active Substance: CHOLECALCIFEROL
  9. PROAIR HFA [Concomitant]
     Active Substance: ALBUTEROL SULFATE
  10. OXYBUTNIN CHLORID [Concomitant]
  11. ZYRTEC-D ALLERGY AND CONGESTION [Concomitant]
     Active Substance: CETIRIZINE HYDROCHLORIDE\PSEUDOEPHEDRINE HYDROCHLORIDE
  12. METRONIDAZOLE 500 MG TABLET (30 PILLS) HERITAGE P [Suspect]
     Active Substance: METRONIDAZOLE
     Indication: ISCHAEMIA
     Dosage: 30 PILLS 3X DAILY  2X DAILY  MOUTH
     Route: 048
     Dates: start: 20151231
  13. BENAZEPRIL HCT [Concomitant]
  14. GENERIC AMLODIPINE BESYLATE [Concomitant]
  15. REMICADE [Concomitant]
     Active Substance: INFLIXIMAB
  16. METHOTREXATE [Concomitant]
     Active Substance: METHOTREXATE
  17. PROBIOTIC [Concomitant]
     Active Substance: PROBIOTICS NOS
  18. CALCITRATE [Concomitant]
     Active Substance: CALCIUM CITRATE
  19. TURMERIC CURCUMIN [Concomitant]
     Active Substance: TURMERIC
  20. NORVASC [Concomitant]
     Active Substance: AMLODIPINE BESYLATE
  21. ALLERGY SHOTS [Concomitant]
     Active Substance: UNSPECIFIED INGREDIENT
  22. LASIX [Concomitant]
     Active Substance: FUROSEMIDE
  23. SINGULAIR [Concomitant]
     Active Substance: MONTELUKAST SODIUM
  24. PEPCID [Concomitant]
     Active Substance: FAMOTIDINE
  25. ZYRTEC [Concomitant]
     Active Substance: CETIRIZINE HYDROCHLORIDE

REACTIONS (3)
  - Gait disturbance [None]
  - Pain [None]
  - Tremor [None]

NARRATIVE: CASE EVENT DATE: 20160102
